FAERS Safety Report 7397580-3 (Version None)
Quarter: 2011Q2

REPORT INFORMATION
  Report Type: 
  Country: None (occurrence: None)
  Receive Date: 20110406
  Receipt Date: 20110328
  Transmission Date: 20111010
  Serious: Yes (Life-Threatening, Hospitalization, Other)
  Sender: FDA-Public Use
  Company Number: US-MERCK-1102USA03503

PATIENT
  Age: 51 Year
  Sex: Male
  Weight: 81 kg

DRUGS (6)
  1. ZANTAC [Concomitant]
     Route: 065
  2. PRAVASTATIN SODIUM [Suspect]
     Route: 048
     Dates: start: 20061227
  3. ZOVIRAX [Concomitant]
     Route: 048
  4. ZETIA [Suspect]
     Indication: LIPIDS INCREASED
     Route: 048
     Dates: start: 20100830, end: 20110224
  5. NEXIUM [Concomitant]
     Route: 065
  6. HERBS (UNSPECIFIED) [Suspect]
     Route: 065

REACTIONS (9)
  - RHABDOMYOLYSIS [None]
  - TOXICITY TO VARIOUS AGENTS [None]
  - GASTROOESOPHAGEAL REFLUX DISEASE [None]
  - LIVER FUNCTION TEST ABNORMAL [None]
  - VARICOSE VEIN [None]
  - DEHYDRATION [None]
  - HERPES SIMPLEX [None]
  - LOW DENSITY LIPOPROTEIN INCREASED [None]
  - DUPUYTREN'S CONTRACTURE [None]
